FAERS Safety Report 5575958-8 (Version None)
Quarter: 2007Q4

REPORT INFORMATION
  Report Type: 
  Country: None (occurrence: None)
  Receive Date: 20071130
  Receipt Date: 20070801
  Transmission Date: 20080405
  Serious: No
  Sender: FDA-Public Use
  Company Number: US200708001950

PATIENT
  Age: 49 Year
  Sex: Male
  Weight: 77.1 kg

DRUGS (13)
  1. BYETTA [Suspect]
     Dosage: 10 UG, 2/D, SUBCUTANEOUS, 10 UG, EACH MORNING, SUBCUTANEOUS, 5 UG, EACH EVENING, SUBCUTANEOUS
     Route: 058
     Dates: start: 20050601
  2. BYETTA [Suspect]
     Dosage: 10 UG, 2/D, SUBCUTANEOUS, 10 UG, EACH MORNING, SUBCUTANEOUS, 5 UG, EACH EVENING, SUBCUTANEOUS
     Route: 058
     Dates: start: 20050601
  3. BYETTA [Suspect]
     Dosage: 10 UG, 2/D, SUBCUTANEOUS, 10 UG, EACH MORNING, SUBCUTANEOUS, 5 UG, EACH EVENING, SUBCUTANEOUS
     Route: 058
     Dates: start: 20050601
  4. NOVOLOG [Concomitant]
  5. METFORMIN HCL [Concomitant]
  6. AVANDIA [Concomitant]
  7. GLYBURIDE [Concomitant]
  8. ASPIRIN [Concomitant]
  9. LISINOPRIL [Concomitant]
  10. TRICOR [Concomitant]
  11. LIPITOR [Concomitant]
  12. TRENTAL [Concomitant]
  13. NEURONTIN [Concomitant]

REACTIONS (2)
  - FOOD INTOLERANCE [None]
  - RETCHING [None]
